FAERS Safety Report 19783595 (Version 1)
Quarter: 2021Q3

REPORT INFORMATION
  Report Type: Spontaneous
  Country: None (occurrence: US)
  Receive Date: 20210902
  Receipt Date: 20210902
  Transmission Date: 20211014
  Serious: No
  Sender: FDA-Public Use
  Company Number: US-ARMSTRONG PHARMACEUTICALS, INC.-2117970

PATIENT
  Age: 48 Year
  Sex: Male
  Weight: 104.55 kg

DRUGS (1)
  1. PRIMATENE MIST [Suspect]
     Active Substance: EPINEPHRINE
     Indication: ASTHMA
     Route: 055

REACTIONS (2)
  - Drug ineffective [Unknown]
  - Throat irritation [Unknown]

NARRATIVE: CASE EVENT DATE: 20210710
